FAERS Safety Report 21343089 (Version 4)
Quarter: 2025Q1

REPORT INFORMATION
  Report Type: Spontaneous
  Country: US (occurrence: US)
  Receive Date: 20220916
  Receipt Date: 20250220
  Transmission Date: 20250409
  Serious: No
  Sender: PFIZER
  Company Number: US-PFIZER INC-PV202200064843

PATIENT
  Age: 72 Year
  Sex: Female

DRUGS (1)
  1. XELJANZ XR [Suspect]
     Active Substance: TOFACITINIB CITRATE
     Dosage: 11 MG TAKE 1 TABLET BY MOUTH DAILY
     Route: 048

REACTIONS (7)
  - Arthralgia [Unknown]
  - Pain in extremity [Recovering/Resolving]
  - Joint range of motion decreased [Unknown]
  - Joint swelling [Unknown]
  - Pain [Unknown]
  - Musculoskeletal stiffness [Unknown]
  - Aphonia [Unknown]
